FAERS Safety Report 22180712 (Version 1)
Quarter: 2023Q2

REPORT INFORMATION
  Report Type: Spontaneous
  Country: ES (occurrence: ES)
  Receive Date: 20230406
  Receipt Date: 20230406
  Transmission Date: 20230722
  Serious: Yes (Other)
  Sender: FDA-Public Use
  Company Number: ES-AEMPS-1349211

PATIENT
  Age: 65 Year
  Sex: Female

DRUGS (1)
  1. MELATONIN [Suspect]
     Active Substance: MELATONIN
     Indication: Insomnia
     Dosage: UNK
     Route: 048
     Dates: start: 20230317, end: 20230317

REACTIONS (3)
  - Diarrhoea [Recovered/Resolved]
  - Dyspnoea [Recovered/Resolved]
  - Rash pruritic [Recovered/Resolved]

NARRATIVE: CASE EVENT DATE: 20230317
